FAERS Safety Report 15367545 (Version 1)
Quarter: 2018Q3

REPORT INFORMATION
  Report Type: Spontaneous
  Country: US (occurrence: US)
  Receive Date: 20180910
  Receipt Date: 20180910
  Transmission Date: 20181010
  Serious: No
  Sender: FDA-Public Use
  Company Number: US-BAYER-2018-169683

PATIENT
  Age: 41 Year
  Sex: Male

DRUGS (1)
  1. ALEVE [Suspect]
     Active Substance: NAPROXEN SODIUM
     Indication: PAIN
     Dosage: 2 DF, TID
     Route: 048
     Dates: start: 20180905, end: 20180906

REACTIONS (3)
  - Product physical issue [None]
  - Incorrect dosage administered [None]
  - Drug ineffective [Unknown]

NARRATIVE: CASE EVENT DATE: 20180905
